FAERS Safety Report 4629959-4 (Version None)
Quarter: 2005Q2

REPORT INFORMATION
  Report Type: 
  Country: None (occurrence: None)
  Receive Date: 20050408
  Receipt Date: 20050228
  Transmission Date: 20051028
  Serious: Yes (Other)
  Sender: FDA-Public Use
  Company Number: JP-ROCHE-398307

PATIENT
  Age: 85 Year
  Sex: Female

DRUGS (3)
  1. TAMIFLU [Suspect]
     Route: 048
     Dates: start: 20050220, end: 20050222
  2. TAMIFLU [Suspect]
     Route: 048
     Dates: start: 20050223, end: 20050223
  3. WARFARIN POTASSIUM [Concomitant]
     Route: 048

REACTIONS (1)
  - MUCOSAL HAEMORRHAGE [None]
